FAERS Safety Report 8539657-2 (Version None)
Quarter: 2012Q3

REPORT INFORMATION
  Report Type: 
  Country: None (occurrence: None)
  Receive Date: 20120726
  Receipt Date: 20110720
  Transmission Date: 20120928
  Serious: No
  Sender: FDA-Public Use
  Company Number: US-ASTRAZENECA-2007UW20954

PATIENT
  Age: 653 Month
  Sex: Male
  Weight: 73.9 kg

DRUGS (12)
  1. ELAVIL [Concomitant]
     Dates: start: 20090101
  2. LIPITOR [Concomitant]
     Dates: start: 20060502
  3. REMERON [Concomitant]
     Dates: start: 20060101
  4. CARISOPRODOL [Concomitant]
     Dates: start: 20060210
  5. SEROQUEL [Suspect]
     Indication: SLEEP DISORDER
     Dosage: 100 TO 300 MG
     Route: 048
     Dates: start: 20060508, end: 20070723
  6. XANAX [Concomitant]
     Dates: start: 20050919
  7. SEROQUEL [Suspect]
     Indication: DEPRESSION
     Dosage: 100 TO 300 MG
     Route: 048
     Dates: start: 20060508, end: 20070723
  8. PAXIL [Concomitant]
     Dates: start: 20060101
  9. ZOLOFT [Concomitant]
     Dates: start: 20060101
  10. LEXAPRO [Concomitant]
     Dates: start: 20060508
  11. LEXAPRO [Concomitant]
     Dates: start: 20090101
  12. ACIPHEX [Concomitant]
     Dates: start: 20060502

REACTIONS (3)
  - TYPE 2 DIABETES MELLITUS [None]
  - LACERATION [None]
  - GASTROOESOPHAGEAL REFLUX DISEASE [None]
